FAERS Safety Report 5023275-7 (Version None)
Quarter: 2006Q2

REPORT INFORMATION
  Report Type: 
  Country: None (occurrence: None)
  Receive Date: 20060605
  Receipt Date: 20060529
  Transmission Date: 20061013
  Serious: Yes (Other)
  Sender: FDA-Public Use
  Company Number: FR-2006-011399

PATIENT
  Age: 37 Year
  Sex: Female
  Weight: 68 kg

DRUGS (1)
  1. MIRENA [Suspect]
     Dosage: 20 UG/DAY, CONT, INTRA-UTERINE
     Route: 015
     Dates: start: 20060307, end: 20060324

REACTIONS (11)
  - CULTURE URINE POSITIVE [None]
  - ESCHERICHIA URINARY TRACT INFECTION [None]
  - HAEMORRHAGIC OVARIAN CYST [None]
  - METRORRHAGIA [None]
  - MYCOPLASMA INFECTION [None]
  - PELVIC PAIN [None]
  - PELVIC VENOUS THROMBOSIS [None]
  - PHLEBITIS [None]
  - PULMONARY EMBOLISM [None]
  - PYREXIA [None]
  - SALPINGITIS [None]
